FAERS Safety Report 21128705 (Version 3)
Quarter: 2022Q3

REPORT INFORMATION
  Report Type: Spontaneous
  Country: JP (occurrence: JP)
  Receive Date: 20220725
  Receipt Date: 20220728
  Transmission Date: 20221026
  Serious: Yes (Other)
  Sender: FDA-Public Use
  Company Number: JP-CHUGAI-2022027084

PATIENT
  Age: 63 Year
  Sex: Male

DRUGS (3)
  1. HERCEPTIN [Suspect]
     Active Substance: TRASTUZUMAB
     Indication: Salivary gland cancer
     Route: 041
     Dates: start: 20220523, end: 2022
  2. HERCEPTIN [Suspect]
     Active Substance: TRASTUZUMAB
     Dosage: 6 MILLIGRAM, ONCE/3WEEKS
     Route: 041
     Dates: start: 202206, end: 202207
  3. DOCETAXEL [Suspect]
     Active Substance: DOCETAXEL
     Indication: Salivary gland cancer
     Dosage: UNK
     Route: 041

REACTIONS (2)
  - Myelosuppression [Not Recovered/Not Resolved]
  - Anaemia [Not Recovered/Not Resolved]

NARRATIVE: CASE EVENT DATE: 20220707
